FAERS Safety Report 8461251-2 (Version None)
Quarter: 2012Q2

REPORT INFORMATION
  Report Type: 
  Country: None (occurrence: None)
  Receive Date: 20120619
  Receipt Date: 20120619
  Transmission Date: 20120825
  Serious: Yes (Hospitalization)
  Sender: FDA-Public Use
  Company Number: None

PATIENT
  Age: 86 Year
  Sex: Female

DRUGS (6)
  1. METRONIDAZOLE [Concomitant]
  2. HEPARIN [Concomitant]
  3. CEFOXITIN [Concomitant]
  4. HYDROMORPHONE HCL [Suspect]
     Indication: POST PROCEDURAL COMPLICATION
     Dosage: 0.5 MG Q30 MIN X 2 DOSES IV BOLUS
     Route: 040
     Dates: start: 20120123, end: 20120123
  5. HYDROMORPHONE HCL [Suspect]
     Indication: RESTLESSNESS
     Dosage: 0.5 MG Q30 MIN X 2 DOSES IV BOLUS
     Route: 040
     Dates: start: 20120123, end: 20120123
  6. FAMOTIDINE [Concomitant]

REACTIONS (3)
  - RESPIRATORY FAILURE [None]
  - RESTLESSNESS [None]
  - CARDIO-RESPIRATORY ARREST [None]
